FAERS Safety Report 9808662 (Version 2)
Quarter: 2014Q1

REPORT INFORMATION
  Report Type: Spontaneous
  Country: US (occurrence: US)
  Receive Date: 20140110
  Receipt Date: 20140110
  Transmission Date: 20141002
  Serious: Yes (Other)
  Sender: FDA-Public Use
  Company Number: US-BRISTOL-MYERS SQUIBB COMPANY-19983584

PATIENT
  Sex: Male

DRUGS (2)
  1. BYETTA [Suspect]
     Dates: start: 200802, end: 201005
  2. JANUVIA [Suspect]
     Dates: start: 200703, end: 200801

REACTIONS (1)
  - Pancreatic carcinoma [Unknown]
